FAERS Safety Report 21070510 (Version 1)
Quarter: 2022Q3

REPORT INFORMATION
  Report Type: Spontaneous
  Country: US (occurrence: US)
  Receive Date: 20220712
  Receipt Date: 20220712
  Transmission Date: 20221026
  Serious: Yes (Other)
  Sender: FDA-Public Use
  Company Number: US-SA-SAC20220707000175

PATIENT
  Age: 87 Year
  Sex: Male

DRUGS (2)
  1. ZANTAC [Suspect]
     Active Substance: RANITIDINE HYDROCHLORIDE
     Indication: Gastrooesophageal reflux disease
     Dosage: 75 MG, QD
     Dates: start: 201201, end: 201803
  2. ZANTAC [Suspect]
     Active Substance: RANITIDINE HYDROCHLORIDE
     Indication: Dyspepsia

REACTIONS (5)
  - Bladder cancer stage III [Unknown]
  - Hepatic cancer stage II [Unknown]
  - Lung carcinoma cell type unspecified stage I [Unknown]
  - Pancreatic carcinoma stage IV [Unknown]
  - Gallbladder cancer stage I [Unknown]

NARRATIVE: CASE EVENT DATE: 20190201
